FAERS Safety Report 16374065 (Version 1)
Quarter: 2019Q2

REPORT INFORMATION
  Report Type: Spontaneous
  Country: FR (occurrence: FR)
  Receive Date: 20190530
  Receipt Date: 20190530
  Transmission Date: 20190711
  Serious: Yes (Hospitalization)
  Sender: FDA-Public Use
  Company Number: FR-MYLANLABS-2019M1049508

PATIENT
  Age: 44 Year
  Sex: Female
  Weight: 61 kg

DRUGS (9)
  1. CLAMOXYL                           /00249601/ [Concomitant]
     Active Substance: AMOXICILLIN
     Indication: INFECTION
     Dosage: UNK
     Route: 048
     Dates: start: 20180918, end: 20180922
  2. AMIKACINE MYLAN 1 G, POUDRE POUR SOLUTION INJECTABLE EN FLACON [Suspect]
     Active Substance: AMIKACIN
     Indication: INFECTION
     Dosage: 1 DOSAGE FORM, QD
     Route: 042
     Dates: start: 20180922, end: 20180925
  3. LOVENOX [Suspect]
     Active Substance: ENOXAPARIN SODIUM
     Indication: PRODUCT USED FOR UNKNOWN INDICATION
     Dosage: UNK
     Route: 058
     Dates: start: 20180914, end: 20181003
  4. PIPERACILLIN AND TAZOBACTAM [Suspect]
     Active Substance: PIPERACILLIN SODIUM\TAZOBACTAM SODIUM
     Indication: INFECTION
     Dosage: 3 DOSAGE FORM, QD
     Route: 042
     Dates: start: 20180922, end: 20180925
  5. CEFTRIAXONE MYLAN 1 G, POUDRE POUR SOLUTION INJECTABLE [Suspect]
     Active Substance: CEFTRIAXONE
     Indication: INFECTION
     Dosage: 1 DOSAGE FORM, QD
     Route: 051
     Dates: start: 20180925, end: 20180928
  6. ROXITHROMYCINE EG [Concomitant]
     Indication: INFECTION
     Dosage: 2 DOSAGE FORM, QD
     Route: 048
     Dates: start: 20180917, end: 20180922
  7. IPRATROPIUM [Concomitant]
     Active Substance: IPRATROPIUM
     Dosage: UNK
     Route: 055
  8. SALBUTAMOL ARROW [Concomitant]
     Active Substance: ALBUTEROL
     Dosage: UNK
     Route: 055
  9. NICOPATCH [Concomitant]
     Active Substance: NICOTINE
     Dosage: UNK

REACTIONS (1)
  - Hepatocellular injury [Recovering/Resolving]

NARRATIVE: CASE EVENT DATE: 20180924
